FAERS Safety Report 4795151-6 (Version None)
Quarter: 2005Q4

REPORT INFORMATION
  Report Type: 
  Country: None (occurrence: None)
  Receive Date: 20051006
  Receipt Date: 20051006
  Transmission Date: 20060501
  Serious: Yes (Life-Threatening)
  Sender: FDA-Public Use
  Company Number: None

PATIENT

DRUGS (1)
  1. JENTOVEN [Suspect]
     Indication: ATRIAL FIBRILLATION
     Dosage: MULTIPLE/DAILY

REACTIONS (1)
  - NO ADVERSE DRUG EFFECT [None]
